FAERS Safety Report 11837490 (Version 1)
Quarter: 2015Q4

REPORT INFORMATION
  Report Type: Spontaneous
  Country: US (occurrence: US)
  Receive Date: 20151215
  Receipt Date: 20151215
  Transmission Date: 20160305
  Serious: Yes (Other)
  Sender: FDA-Public Use
  Company Number: US-NOVOPROD-430493

PATIENT
  Age: 59 Year
  Sex: Male
  Weight: 83 kg

DRUGS (4)
  1. LANTUS [Concomitant]
     Active Substance: INSULIN GLARGINE
     Dosage: 14 U, QD AT 11:38PM
     Route: 058
     Dates: start: 20141120, end: 20141120
  2. NOVOLIN R [Suspect]
     Active Substance: INSULIN HUMAN
     Indication: TYPE 1 DIABETES MELLITUS
     Dosage: 45 U, UNK
     Route: 058
     Dates: start: 2012
  3. NOVOLIN R [Suspect]
     Active Substance: INSULIN HUMAN
     Dosage: 10 U, SINGLE DOSE AT 11:38 PM WITH BEDTIME SNACK
     Route: 058
     Dates: start: 20141120, end: 20141120
  4. LANTUS [Concomitant]
     Active Substance: INSULIN GLARGINE
     Indication: TYPE 1 DIABETES MELLITUS
     Dosage: 10 U, QHS
     Route: 058
     Dates: start: 2004

REACTIONS (2)
  - Incorrect dose administered [Recovered/Resolved]
  - Hypoglycaemia [Recovered/Resolved]

NARRATIVE: CASE EVENT DATE: 20141120
